FAERS Safety Report 24291312 (Version 1)
Quarter: 2024Q3

REPORT INFORMATION
  Report Type: Spontaneous
  Country: US (occurrence: None)
  Receive Date: 20240906
  Receipt Date: 20240906
  Transmission Date: 20241016
  Serious: No
  Sender: DOMPE FARMACEUTICI
  Company Number: US-FARMAPROD-202308-2306

PATIENT
  Sex: Female
  Weight: 62.51 kg

DRUGS (35)
  1. OXERVATE [Suspect]
     Active Substance: CENEGERMIN-BKBJ
     Indication: Neurotrophic keratopathy
     Route: 047
     Dates: start: 20230711
  2. OXERVATE [Suspect]
     Active Substance: CENEGERMIN-BKBJ
  3. AUTOLOGOUS HUMAN CORNEAL EPITHELIAL CELLS [Concomitant]
  4. ROPINIROLE HYDROCHLORIDE [Concomitant]
     Active Substance: ROPINIROLE HYDROCHLORIDE
  5. AZELASTINE HYDROCHLORIDE [Concomitant]
     Active Substance: AZELASTINE HYDROCHLORIDE
     Dosage: SPRAY WITH PUMP.
  6. TRAMADOL HCL [Concomitant]
     Active Substance: TRAMADOL HYDROCHLORIDE
  7. DORZOLAMIDE [Concomitant]
     Active Substance: DORZOLAMIDE
     Dosage: 22.3-6.8/1 DROPS.
  8. BRIMONIDINE TARTRATE/TIMOLOL [Concomitant]
  9. PREDNISOLONE ACETATE [Concomitant]
     Active Substance: PREDNISOLONE ACETATE
  10. CHLORDIAZEPOXIDE CLIDINIUM [Concomitant]
     Active Substance: CHLORDIAZEPOXIDE HYDROCHLORIDE\CLIDINIUM BROMIDE
  11. MELOXICAM [Concomitant]
     Active Substance: MELOXICAM
  12. BRIMONIDINE TARTRATE [Concomitant]
     Active Substance: BRIMONIDINE TARTRATE
  13. CLOPIDOGREL [Concomitant]
     Active Substance: CLOPIDOGREL BISULFATE
  14. FLUCONAZOLE [Concomitant]
     Active Substance: FLUCONAZOLE
  15. METRONIDAZOLE [Concomitant]
     Active Substance: METRONIDAZOLE
  16. LEVOTHYROXINE SODIUM [Concomitant]
     Active Substance: LEVOTHYROXINE SODIUM
  17. AMOXICILLIN\CLAVULANATE POTASSIUM [Concomitant]
     Active Substance: AMOXICILLIN\CLAVULANATE POTASSIUM
  18. HYDRALAZINE HCL [Concomitant]
     Active Substance: HYDRALAZINE HYDROCHLORIDE
  19. CIPROFLOXACIN HYDROCHLORIDE [Concomitant]
     Active Substance: CIPROFLOXACIN HYDROCHLORIDE
  20. KETOCONAZOLE [Concomitant]
     Active Substance: KETOCONAZOLE
  21. DIFLUPREDNATE [Concomitant]
     Active Substance: DIFLUPREDNATE
  22. LORAZEPAM [Concomitant]
     Active Substance: LORAZEPAM
  23. PRALUENT [Concomitant]
     Active Substance: ALIROCUMAB
  24. ONDANSETRON [Concomitant]
     Active Substance: ONDANSETRON
     Dosage: ORALLY DISINTEGRATING TABLETS.
  25. OFLOXACIN [Concomitant]
     Active Substance: OFLOXACIN
  26. METAMUCIL [Concomitant]
     Active Substance: PLANTAGO SEED
     Dosage: PACK
  27. FLAXSEED [Concomitant]
     Active Substance: FLAX SEED
  28. CALCIUM CARBONATE [Concomitant]
     Active Substance: CALCIUM CARBONATE
     Dosage: 500 MG / 5 ML ORAL SUSPENSION.
  29. MINERALS\VITAMINS [Concomitant]
     Active Substance: MINERALS\VITAMINS
     Dosage: 4296-226
  30. ZYRTEC [Concomitant]
     Active Substance: CETIRIZINE HYDROCHLORIDE
  31. VITAMINS [Concomitant]
     Active Substance: VITAMINS
     Dosage: 9 MG /15 ML LIQUID
  32. PROBIOTIC 5B [Concomitant]
     Dosage: 5 BILLION CELL
  33. VITAMINS [Concomitant]
     Active Substance: VITAMINS
     Dosage: 9 MG / 15 ML LIQUID.
  34. UNSPECIFIED INGREDIENT [Concomitant]
     Active Substance: UNSPECIFIED INGREDIENT
     Dosage: 3.5-400-5000.
  35. ZIOPTAN [Concomitant]
     Active Substance: TAFLUPROST

REACTIONS (7)
  - Eye infection [Unknown]
  - Intraocular pressure increased [Unknown]
  - Eye pain [Not Recovered/Not Resolved]
  - Superficial injury of eye [Unknown]
  - Sleep disorder [Unknown]
  - Eye irritation [Not Recovered/Not Resolved]
  - Headache [Not Recovered/Not Resolved]
